FAERS Safety Report 7979115-7 (Version None)
Quarter: 2011Q4

REPORT INFORMATION
  Report Type: 
  Country: None (occurrence: None)
  Receive Date: 20111214
  Receipt Date: 20111205
  Transmission Date: 20120403
  Serious: Yes (Other)
  Sender: FDA-Public Use
  Company Number: US-BAYER-2011-049727

PATIENT
  Age: 37 Year
  Sex: Female
  Weight: 113 kg

DRUGS (12)
  1. ZIAC [Concomitant]
     Dosage: UNK
     Route: 048
     Dates: start: 20090513
  2. LISINOPRIL [Concomitant]
     Indication: BLOOD PRESSURE MANAGEMENT
     Dosage: UNK
     Dates: start: 19980101
  3. ASCORBIC ACID [Concomitant]
     Indication: GENERAL PHYSICAL HEALTH DETERIORATION
     Dosage: DAILY DOSE 500 MG
     Route: 048
     Dates: start: 20090513
  4. YAZ [Suspect]
     Indication: CONTRACEPTION
     Dosage: UNK
     Route: 048
     Dates: start: 20070101, end: 20090101
  5. NAPROSYN [Concomitant]
  6. AMBIEN [Concomitant]
     Indication: INSOMNIA
     Dosage: UNK
     Dates: start: 20070101
  7. ZIAC [Concomitant]
     Indication: HYPERTENSION
     Dosage: UNK
     Dates: start: 20070101
  8. LORTAB [Concomitant]
     Dosage: UNK
     Route: 048
     Dates: start: 20090513
  9. MEPROZINE [Concomitant]
  10. FML [Concomitant]
     Route: 047
  11. AMBIEN CR [Concomitant]
     Dosage: 12.5 MG, HS
     Route: 048
     Dates: start: 20090513
  12. ULTRAM [Concomitant]

REACTIONS (6)
  - FEAR [None]
  - EMOTIONAL DISORDER [None]
  - ANXIETY [None]
  - CHOLECYSTITIS CHRONIC [None]
  - PAIN [None]
  - INJURY [None]
